FAERS Safety Report 25896410 (Version 1)
Quarter: 2025Q4

REPORT INFORMATION
  Report Type: Spontaneous
  Country: CN (occurrence: CN)
  Receive Date: 20251008
  Receipt Date: 20251008
  Transmission Date: 20260118
  Serious: Yes (Life-Threatening)
  Sender: FRESENIUS KABI
  Company Number: CN-FreseniusKabi-FK202513463

PATIENT
  Age: 69 Year
  Sex: Male

DRUGS (1)
  1. KABIVEN [Suspect]
     Active Substance: ALANINE\ARGININE\ASPARTIC ACID\CALCIUM CHLORIDE\DEXTROSE MONOHYDRATE\GLUTAMIC ACID\GLYCINE\HISTIDINE
     Indication: Parenteral nutrition
     Dosage: 26SEP2025: THERAPY START TIME (16:00)?27SEP2025: ANOTHER INFUSION OF KABIVEN PI AT 13:40?FOA-INJECTI
     Route: 041
     Dates: start: 20250926, end: 20250927

REACTIONS (2)
  - Hypotension [Unknown]
  - Coma [Unknown]

NARRATIVE: CASE EVENT DATE: 20250927
